FAERS Safety Report 8466151-X (Version None)
Quarter: 2012Q2

REPORT INFORMATION
  Report Type: 
  Country: None (occurrence: None)
  Receive Date: 20120626
  Receipt Date: 20120620
  Transmission Date: 20120825
  Serious: Yes (Other)
  Sender: FDA-Public Use
  Company Number: US-PFIZER INC-2012149238

PATIENT
  Sex: Female
  Weight: 56.7 kg

DRUGS (2)
  1. CELEBREX [Suspect]
     Indication: OSTEOPOROSIS
     Dosage: 200 MG, 2X/DAY
     Dates: start: 20060101
  2. LIPITOR [Suspect]
     Indication: BLOOD CHOLESTEROL INCREASED
     Dosage: 20 MG, DAILY
     Dates: start: 20060101

REACTIONS (6)
  - BACK DISORDER [None]
  - URINARY INCONTINENCE [None]
  - FEELING ABNORMAL [None]
  - NEUROPATHY PERIPHERAL [None]
  - NERVE COMPRESSION [None]
  - HYPOAESTHESIA [None]
